FAERS Safety Report 4831860-8 (Version None)
Quarter: 2005Q4

REPORT INFORMATION
  Report Type: 
  Country: None (occurrence: None)
  Receive Date: 20051116
  Receipt Date: 20051031
  Transmission Date: 20060501
  Serious: Yes (Hospitalization)
  Sender: FDA-Public Use
  Company Number: 12447

PATIENT
  Age: 27 Year
  Sex: Female

DRUGS (7)
  1. METHOTREXATE [Suspect]
     Dosage: 15 MG PO
     Route: 048
  2. ENBREL [Suspect]
     Dosage: 50 MG WEEKLY ST
     Dates: start: 20050719, end: 20050905
  3. DICLOFENAC [Concomitant]
  4. DOCUSATE SODIUM [Concomitant]
  5. SENNA [Concomitant]
  6. TRAMADOL HCL [Concomitant]
  7. FOLIC ACID [Concomitant]

REACTIONS (15)
  - BALANCE DISORDER [None]
  - COUGH [None]
  - CSF WHITE BLOOD CELL COUNT INCREASED [None]
  - HEADACHE [None]
  - MALAISE [None]
  - MUSCULOSKELETAL STIFFNESS [None]
  - NASOPHARYNGITIS [None]
  - NAUSEA [None]
  - PHARYNGOLARYNGEAL PAIN [None]
  - PHOTOPHOBIA [None]
  - PYREXIA [None]
  - RED BLOOD CELLS CSF POSITIVE [None]
  - SEPSIS [None]
  - TONSILLITIS [None]
  - VOMITING [None]
